FAERS Safety Report 8315621-3 (Version None)
Quarter: 2012Q2

REPORT INFORMATION
  Report Type: 
  Country: None (occurrence: None)
  Receive Date: 20120426
  Receipt Date: 20120420
  Transmission Date: 20120825
  Serious: Yes (Hospitalization)
  Sender: FDA-Public Use
  Company Number: FR-ABBOTT-12P-056-0927683-00

PATIENT
  Sex: Male

DRUGS (7)
  1. FLAGYL [Suspect]
     Indication: PEPTIC ULCER
     Route: 048
     Dates: start: 20120307, end: 20120309
  2. IRBESARTAN [Concomitant]
     Indication: PRODUCT USED FOR UNKNOWN INDICATION
  3. AMLODIPINE BESYLATE [Concomitant]
     Indication: PRODUCT USED FOR UNKNOWN INDICATION
     Dosage: 10
  4. FLAGYL [Suspect]
     Route: 042
     Dates: start: 20120309, end: 20120315
  5. CLARITHROMYCIN [Suspect]
     Indication: PEPTIC ULCER
     Route: 048
     Dates: start: 20120307
  6. EUPANTOL [Suspect]
     Indication: PEPTIC ULCER
     Route: 048
     Dates: start: 20120307
  7. AMOXICILLIN [Suspect]
     Indication: PEPTIC ULCER
     Route: 048
     Dates: start: 20120307

REACTIONS (1)
  - ORGANISING PNEUMONIA [None]
